FAERS Safety Report 4698835-3 (Version None)
Quarter: 2005Q2

REPORT INFORMATION
  Report Type: 
  Country: None (occurrence: None)
  Receive Date: 20050623
  Receipt Date: 20050620
  Transmission Date: 20051028
  Serious: Yes (Death)
  Sender: FDA-Public Use
  Company Number: 05-05-0923

PATIENT
  Age: 48 Year
  Sex: Male

DRUGS (4)
  1. CLOZAPINE [Suspect]
     Indication: SCHIZOPHRENIA
     Dosage: 150MG QAM ORAL; 300MG QHS
     Route: 048
     Dates: start: 19991101, end: 20050401
  2. CLOZAPINE [Suspect]
     Indication: SCHIZOPHRENIA
     Dosage: 150MG QAM ORAL; 300MG QHS
     Route: 048
     Dates: start: 19991101, end: 20050401
  3. LOXITANE [Concomitant]
  4. DEPAKOTE [Concomitant]

REACTIONS (6)
  - CHRONIC OBSTRUCTIVE PULMONARY DISEASE [None]
  - CONGESTIVE CARDIOMYOPATHY [None]
  - HYPERLIPIDAEMIA [None]
  - HYPOTHYROIDISM [None]
  - OBESITY [None]
  - SCHIZOPHRENIA [None]
